FAERS Safety Report 4906990-2 (Version None)
Quarter: 2006Q1

REPORT INFORMATION
  Report Type: 
  Country: None (occurrence: None)
  Receive Date: 20060207
  Receipt Date: 20060123
  Transmission Date: 20060701
  Serious: Yes (Other)
  Sender: FDA-Public Use
  Company Number: 2005-02522

PATIENT
  Age: 69 Year
  Sex: Female
  Weight: 65.8 kg

DRUGS (5)
  1. VELCADE [Suspect]
     Indication: MULTIPLE MYELOMA
     Dosage: 1.30 MG/M2, INTRAVENOUS
     Route: 042
     Dates: start: 20050725, end: 20051205
  2. ZANTAC [Concomitant]
  3. NORVASC [Concomitant]
  4. VASOTEC [Concomitant]
  5. RITALIN [Concomitant]

REACTIONS (3)
  - CONJUNCTIVITIS [None]
  - DIARRHOEA [None]
  - EYE DISCHARGE [None]
